FAERS Safety Report 18223266 (Version 6)
Quarter: 2025Q1

REPORT INFORMATION
  Report Type: Spontaneous
  Country: FI (occurrence: FI)
  Receive Date: 20200902
  Receipt Date: 20250313
  Transmission Date: 20250408
  Serious: Yes (Hospitalization)
  Sender: ROCHE
  Company Number: FI-ROCHE-2665839

PATIENT
  Age: 41 Year
  Sex: Female

DRUGS (12)
  1. OCREVUS [Suspect]
     Active Substance: OCRELIZUMAB
     Indication: Relapsing-remitting multiple sclerosis
     Route: 042
     Dates: start: 20191029
  2. OCREVUS [Suspect]
     Active Substance: OCRELIZUMAB
     Route: 042
     Dates: start: 20191112
  3. DOXYCYCLINE [Concomitant]
     Active Substance: DOXYCYCLINE
  4. TAMIFLU [Concomitant]
     Active Substance: OSELTAMIVIR PHOSPHATE
  5. AMOXICILLIN [Concomitant]
     Active Substance: AMOXICILLIN
  6. AMOXICILLIN [Concomitant]
     Active Substance: AMOXICILLIN
  7. CEFTRIAXONE [Concomitant]
     Active Substance: CEFTRIAXONE
  8. ROXITHROMYCIN [Concomitant]
     Active Substance: ROXITHROMYCIN
  9. INFLUENZA VIRUS VACCINE [Concomitant]
     Active Substance: INFLUENZA VIRUS VACCINE
  10. CETIRIZIN-RATIOPHARM [Concomitant]
     Dates: start: 20191029
  11. PANTOPRAZOLE [Concomitant]
     Active Substance: PANTOPRAZOLE
     Route: 048
     Dates: start: 20191029
  12. PANADOL FORTE [Concomitant]
     Route: 048
     Dates: start: 20191029

REACTIONS (9)
  - Respiratory tract infection viral [Recovered/Resolved]
  - Pneumonia mycoplasmal [Recovered/Resolved]
  - Suspected COVID-19 [Recovered/Resolved]
  - Lung infiltration [Recovered/Resolved]
  - Viral infection [Recovered/Resolved]
  - Pyrexia [Recovered/Resolved]
  - Cough [Recovered/Resolved]
  - Bronchial secretion retention [Recovered/Resolved]
  - Dyspnoea exertional [Recovered/Resolved]

NARRATIVE: CASE EVENT DATE: 20200313
